FAERS Safety Report 6017820-2 (Version None)
Quarter: 2008Q4

REPORT INFORMATION
  Report Type: 
  Country: None (occurrence: None)
  Receive Date: 20081223
  Receipt Date: 20081212
  Transmission Date: 20090506
  Serious: Yes (Disabling)
  Sender: FDA-Public Use
  Company Number: US-ROCHE-598248

PATIENT
  Age: 55 Year
  Sex: Female
  Weight: 76.2 kg

DRUGS (3)
  1. BONIVA [Suspect]
     Indication: OSTEOPENIA
     Route: 048
     Dates: start: 20081115, end: 20081115
  2. PRILOSEC [Concomitant]
     Dosage: TAKEN PRN.
     Route: 048
  3. ZYRTEC [Concomitant]
     Dosage: TAKEN PRN.
     Route: 048

REACTIONS (2)
  - MUSCULOSKELETAL STIFFNESS [None]
  - MYALGIA [None]
